FAERS Safety Report 8272870-0 (Version None)
Quarter: 2012Q2

REPORT INFORMATION
  Report Type: 
  Country: None (occurrence: None)
  Receive Date: 20120411
  Receipt Date: 20120330
  Transmission Date: 20120825
  Serious: No
  Sender: FDA-Public Use
  Company Number: US-BIOGENIDEC-2012BI011829

PATIENT
  Sex: Female

DRUGS (8)
  1. TYSABRI [Suspect]
     Indication: MULTIPLE SCLEROSIS
     Route: 042
     Dates: start: 20081209, end: 20110214
  2. NAPROXEN (ALEVE) [Concomitant]
     Route: 048
  3. GAS- X CHILDRENS [Concomitant]
     Route: 048
  4. AMPYRA [Concomitant]
     Route: 048
  5. AMBIEN [Concomitant]
     Route: 048
  6. LUNESTA [Concomitant]
     Route: 048
  7. DIPHENHYDRAMINE HCL [Concomitant]
     Route: 048
  8. FISH OIL CAPS [Concomitant]

REACTIONS (11)
  - RESTLESS LEGS SYNDROME [None]
  - DIPLEGIA [None]
  - PARAESTHESIA [None]
  - MUSCLE SPASMS [None]
  - GAIT DISTURBANCE [None]
  - GAIT SPASTIC [None]
  - ROAD TRAFFIC ACCIDENT [None]
  - POLLAKIURIA [None]
  - MUSCULOSKELETAL STIFFNESS [None]
  - SENSORY LOSS [None]
  - MUSCULAR WEAKNESS [None]
